FAERS Safety Report 7386616-1 (Version None)
Quarter: 2011Q1

REPORT INFORMATION
  Report Type: 
  Country: None (occurrence: None)
  Receive Date: 20110331
  Receipt Date: 20110325
  Transmission Date: 20110831
  Serious: Yes (Other)
  Sender: FDA-Public Use
  Company Number: GB-PFIZER INC-2011067889

PATIENT

DRUGS (1)
  1. XALATAN [Suspect]

REACTIONS (2)
  - CYSTOID MACULAR OEDEMA [None]
  - INTRAOCULAR LENS EXTRACTION [None]
